FAERS Safety Report 5036245-X (Version None)
Quarter: 2006Q2

REPORT INFORMATION
  Report Type: 
  Country: None (occurrence: None)
  Receive Date: 20060601
  Receipt Date: 20060428
  Transmission Date: 20061013
  Serious: No
  Sender: FDA-Public Use
  Company Number: US200604004787

PATIENT
  Age: 59 Year
  Sex: Female
  Weight: 112.5 kg

DRUGS (10)
  1. CYMBALTA [Suspect]
     Indication: NEUROPATHY PERIPHERAL
     Dosage: SEE IMAGE
     Dates: start: 20060330, end: 20060420
  2. CYMBALTA [Suspect]
     Indication: NEUROPATHY PERIPHERAL
     Dosage: SEE IMAGE
     Dates: start: 20030101
  3. CYMBALTA [Suspect]
     Indication: NEUROPATHY PERIPHERAL
     Dosage: SEE IMAGE
     Dates: start: 20060421
  4. HYDROCHLOROTHIAZIDE [Concomitant]
  5. EZETIMIBE (EZETIMIBE) [Concomitant]
  6. SIMVASTATIN [Concomitant]
  7. PROTONIX [Concomitant]
  8. AMBIEN [Concomitant]
  9. VITAMINS NOS (VITAMINS NOS) [Concomitant]
  10. PROPANOLOL (PROPANOLOL) [Concomitant]

REACTIONS (4)
  - ABDOMINAL PAIN [None]
  - DRUG INEFFECTIVE [None]
  - URINE ODOUR ABNORMAL [None]
  - URINE OUTPUT INCREASED [None]
